FAERS Safety Report 4875367-0 (Version None)
Quarter: 2006Q1

REPORT INFORMATION
  Report Type: 
  Country: None (occurrence: None)
  Receive Date: 20060109
  Receipt Date: 20051220
  Transmission Date: 20060701
  Serious: Yes (Disabling)
  Sender: FDA-Public Use
  Company Number: DE-MERCK-0512DEU00109

PATIENT
  Age: 60 Year
  Sex: Female

DRUGS (9)
  1. VYTORIN [Suspect]
     Indication: TYPE IIA HYPERLIPIDAEMIA
     Route: 048
     Dates: start: 20050801, end: 20051101
  2. LEVOTHYROXINE SODIUM [Concomitant]
     Indication: HYPOTHYROIDISM
     Route: 065
     Dates: start: 19990101
  3. LEVOTHYROXINE SODIUM [Concomitant]
     Indication: AUTOIMMUNE THYROIDITIS
     Route: 065
     Dates: start: 19990101
  4. ASPIRIN [Concomitant]
     Indication: CARDIOVASCULAR DISORDER
     Route: 065
     Dates: start: 20010101
  5. ASPIRIN [Concomitant]
     Indication: FAMILIAL RISK FACTOR
     Route: 065
     Dates: start: 20010101
  6. CINNAMON [Concomitant]
     Indication: DIABETES MELLITUS NON-INSULIN-DEPENDENT
     Route: 065
     Dates: start: 20040101
  7. IRBESARTAN [Concomitant]
     Indication: HYPERTENSION
     Route: 065
     Dates: start: 20020101
  8. ARCOXIA [Concomitant]
     Indication: BACK PAIN
     Route: 048
     Dates: start: 20040101
  9. ARCOXIA [Concomitant]
     Route: 048
     Dates: start: 20040101

REACTIONS (2)
  - ARTHRITIS [None]
  - LIGAMENT LAXITY [None]
